FAERS Safety Report 9070156 (Version 1)
Quarter: 2013Q1

REPORT INFORMATION
  Report Type: Report from Study
  Country: US (occurrence: US)
  Receive Date: 20130129
  Receipt Date: 20130129
  Transmission Date: 20140127
  Serious: No
  Sender: FDA-Public Use
  Company Number: US-ABBOTT-12P-163-0940189-00

PATIENT
  Sex: Female
  Weight: 69.46 kg

DRUGS (4)
  1. HUMIRA 40 MG/0.8 ML PEN [Suspect]
     Indication: RHEUMATOID ARTHRITIS
     Dosage: EVERY 10-14 DAYS
     Dates: start: 2009, end: 201111
  2. HUMIRA 40 MG/0.8 ML PEN [Suspect]
     Dates: start: 201111, end: 201205
  3. METHOTREXATE [Concomitant]
     Indication: PSORIASIS
  4. LEUCOVORIN [Concomitant]
     Indication: PSORIASIS

REACTIONS (8)
  - Dysphonia [Not Recovered/Not Resolved]
  - Arthralgia [Recovered/Resolved]
  - Nasopharyngitis [Not Recovered/Not Resolved]
  - Productive cough [Recovering/Resolving]
  - Nasopharyngitis [Not Recovered/Not Resolved]
  - Throat irritation [Not Recovered/Not Resolved]
  - Joint stiffness [Not Recovered/Not Resolved]
  - Sputum discoloured [Recovering/Resolving]
